FAERS Safety Report 8818348 (Version 2)
Quarter: 2012Q4

REPORT INFORMATION
  Report Type: Report from Study
  Country: US (occurrence: US)
  Receive Date: 20121001
  Receipt Date: 20121018
  Transmission Date: 20130627
  Serious: No
  Sender: FDA-Public Use
  Company Number: US-VERTEX PHARMACEUTICAL INC.-2012-020694

PATIENT

DRUGS (4)
  1. VX-770 [Suspect]
     Indication: CYSTIC FIBROSIS
     Dosage: 150 mg, bid
     Route: 048
     Dates: start: 20120803
  2. AEROSOL [Concomitant]
  3. HYPERTONIC SALINE SOLUTION [Concomitant]
  4. ZOFRAN                             /00955301/ [Concomitant]
     Indication: NAUSEA

REACTIONS (2)
  - Pseudomonas infection [Recovered/Resolved]
  - Nausea [Recovered/Resolved]
